FAERS Safety Report 22737672 (Version 2)
Quarter: 2024Q4

REPORT INFORMATION
  Report Type: Spontaneous
  Country: CA (occurrence: CA)
  Receive Date: 20230721
  Receipt Date: 20241029
  Transmission Date: 20250114
  Serious: Yes (Hospitalization)
  Sender: PFIZER
  Company Number: CA-PFIZER INC-202200342396

PATIENT
  Age: 45 Year
  Sex: Female

DRUGS (6)
  1. RUXIENCE [Suspect]
     Active Substance: RITUXIMAB-PVVR
     Indication: Myositis
     Dosage: DAY 1 AND 15
     Route: 042
     Dates: start: 20220321, end: 20220408
  2. RUXIENCE [Suspect]
     Active Substance: RITUXIMAB-PVVR
     Indication: Interstitial lung disease
     Dosage: DAY 1 AND DAY 15
     Route: 042
     Dates: start: 20220422, end: 20220422
  3. RUXIENCE [Suspect]
     Active Substance: RITUXIMAB-PVVR
     Dosage: DAY 1 AND 15, SINGLE DOSE
     Route: 042
     Dates: start: 20221005, end: 20221005
  4. RUXIENCE [Suspect]
     Active Substance: RITUXIMAB-PVVR
     Dosage: DAY 1 AND 15, SINGLE DOSE
     Route: 042
     Dates: start: 20230814, end: 20230828
  5. RUXIENCE [Suspect]
     Active Substance: RITUXIMAB-PVVR
     Dosage: DAY 1 AND 15, SINGLE DOSE
     Route: 042
     Dates: start: 20240425, end: 20240517
  6. RUXIENCE [Suspect]
     Active Substance: RITUXIMAB-PVVR
     Dosage: DAY 1 AND 15, SINGLE DOSE
     Route: 042
     Dates: start: 20240517

REACTIONS (5)
  - Illness [Unknown]
  - Pharyngitis streptococcal [Unknown]
  - Off label use [Unknown]
  - Throat irritation [Unknown]
  - Pharyngeal swelling [Unknown]

NARRATIVE: CASE EVENT DATE: 20220321
